FAERS Safety Report 6609181-2 (Version None)
Quarter: 2010Q1

REPORT INFORMATION
  Report Type: 
  Country: None (occurrence: None)
  Receive Date: 20100224
  Receipt Date: 20100210
  Transmission Date: 20100710
  Serious: Yes (Death)
  Sender: FDA-Public Use
  Company Number: A-NJ2010-33860

PATIENT
  Age: 66 Year
  Sex: Female

DRUGS (3)
  1. TRACLEER [Suspect]
     Indication: PULMONARY ARTERIAL HYPERTENSION
     Dosage: UNK, UNK, ORAL
     Route: 048
     Dates: start: 20080122
  2. VENTAVISIL(ILOPROST) INHALATION VAPOUR, SOLUTION [Suspect]
     Indication: PULMONARY ARTERIAL HYPERTENSION
     Dosage: UNK, UNK, RESPIRATORY
     Route: 055
     Dates: start: 20090330, end: 20100206
  3. COUMADIN [Concomitant]

REACTIONS (1)
  - DEATH [None]
